FAERS Safety Report 7226895-4 (Version None)
Quarter: 2011Q1

REPORT INFORMATION
  Report Type: 
  Country: None (occurrence: None)
  Receive Date: 20110114
  Receipt Date: 20110105
  Transmission Date: 20110831
  Serious: Yes (Hospitalization)
  Sender: FDA-Public Use
  Company Number: US-ASTRAZENECA-2010SE48552

PATIENT
  Age: 70 Year
  Sex: Female
  Weight: 53.5 kg

DRUGS (10)
  1. ASPIRIN [Concomitant]
     Dosage: 81 MG
  2. MULTIVITAMIN [Concomitant]
  3. TOPROL-XL [Suspect]
     Route: 048
     Dates: end: 20100901
  4. AMBIEN [Concomitant]
     Dosage: PRN
  5. VALIUM [Concomitant]
  6. TOPROL-XL [Suspect]
     Route: 048
     Dates: start: 20100901
  7. MOBIC [Concomitant]
  8. ZETIA [Concomitant]
  9. TOPROL-XL [Suspect]
     Indication: STENT PLACEMENT
     Route: 048
     Dates: start: 20090301, end: 20090101
  10. LEVOXYL [Concomitant]
     Dosage: 0.088 MG

REACTIONS (2)
  - ALOPECIA [None]
  - CORONARY ARTERIAL STENT INSERTION [None]
